FAERS Safety Report 5342720-0 (Version None)
Quarter: 2007Q2

REPORT INFORMATION
  Report Type: 
  Country: None (occurrence: None)
  Receive Date: 20070601
  Receipt Date: 20070521
  Transmission Date: 20071010
  Serious: Yes (Other)
  Sender: FDA-Public Use
  Company Number: FR-PFIZER INC-2007041476

PATIENT
  Sex: Female

DRUGS (7)
  1. CHAMPIX [Suspect]
  2. ELAVIL [Concomitant]
  3. TRANXENE [Concomitant]
  4. PROZAC [Concomitant]
  5. IRBESARTAN [Concomitant]
  6. LIPANTHYL [Concomitant]
  7. LEVOTHYROXINE SODIUM [Concomitant]

REACTIONS (6)
  - ABDOMINAL DISTENSION [None]
  - ANOREXIA [None]
  - COLITIS [None]
  - CONSTIPATION [None]
  - NAUSEA [None]
  - SMOKER [None]
